FAERS Safety Report 25307762 (Version 4)
Quarter: 2025Q4

REPORT INFORMATION
  Report Type: Report from Study
  Country: US (occurrence: US)
  Receive Date: 20250513
  Receipt Date: 20251028
  Transmission Date: 20260118
  Serious: Yes (Other)
  Sender: ABBVIE
  Company Number: US-ABBVIE-6272390

PATIENT
  Age: 49 Year
  Sex: Male

DRUGS (5)
  1. CREON [Suspect]
     Active Substance: PANCRELIPASE AMYLASE\PANCRELIPASE LIPASE\PANCRELIPASE PROTEASE
     Indication: Product used for unknown indication
     Dosage: 36,000 UNITS, LAST ADMIN DATE 2025
     Route: 048
     Dates: start: 20250117, end: 202505
  2. CREON [Suspect]
     Active Substance: PANCRELIPASE AMYLASE\PANCRELIPASE LIPASE\PANCRELIPASE PROTEASE
     Indication: Product used for unknown indication
     Dosage: DOSE REDUCED 24, 000 UNITS
     Route: 048
     Dates: start: 202505
  3. CREON [Suspect]
     Active Substance: PANCRELIPASE AMYLASE\PANCRELIPASE LIPASE\PANCRELIPASE PROTEASE
     Indication: Product used for unknown indication
     Dosage: TAKE 36,000 UNITS
     Route: 048
     Dates: start: 20250602
  4. CREON [Suspect]
     Active Substance: PANCRELIPASE AMYLASE\PANCRELIPASE LIPASE\PANCRELIPASE PROTEASE
     Indication: Product used for unknown indication
     Route: 048
  5. CREON [Suspect]
     Active Substance: PANCRELIPASE AMYLASE\PANCRELIPASE LIPASE\PANCRELIPASE PROTEASE
     Indication: Product used for unknown indication
     Route: 048

REACTIONS (20)
  - Gastric operation [Unknown]
  - Diarrhoea [Unknown]
  - Dyspepsia [Recovered/Resolved]
  - Asthenia [Unknown]
  - Flatulence [Recovering/Resolving]
  - Incorrect dose administered [Unknown]
  - Gastrooesophageal reflux disease [Recovered/Resolved]
  - Abdominal distension [Not Recovered/Not Resolved]
  - Gastrooesophageal reflux disease [Unknown]
  - Dyspepsia [Unknown]
  - Faeces hard [Unknown]
  - Dyspepsia [Unknown]
  - Weight decreased [Unknown]
  - Intestinal operation [Unknown]
  - Pancreatic operation [Unknown]
  - Liver operation [Unknown]
  - Gallbladder operation [Unknown]
  - Oesophageal operation [Unknown]
  - Drug ineffective [Unknown]
  - Pancreatic carcinoma [Unknown]

NARRATIVE: CASE EVENT DATE: 20250131
